FAERS Safety Report 12467811 (Version 1)
Quarter: 2016Q2

REPORT INFORMATION
  Report Type: Spontaneous
  Country: ES (occurrence: ES)
  Receive Date: 20160615
  Receipt Date: 20160615
  Transmission Date: 20160815
  Serious: Yes (Other)
  Sender: FDA-Public Use
  Company Number: ES-BAXALTA-2016BLT003988

PATIENT
  Age: 3 Year
  Sex: Male
  Weight: 13 kg

DRUGS (2)
  1. ADVATE [Suspect]
     Active Substance: ANTIHEMOPHILIC FACTOR, HUMAN RECOMBINANT
     Indication: PROPHYLAXIS
     Dosage: 500 IU, UNK
     Route: 042
     Dates: start: 20150410
  2. ADVATE [Suspect]
     Active Substance: ANTIHEMOPHILIC FACTOR, HUMAN RECOMBINANT
     Indication: FACTOR VIII DEFICIENCY
     Dosage: 500 IU (38 IU/KG) EVERY MONDAY, WEDNESDAY, AND FRIDAY
     Route: 042
     Dates: start: 2013

REACTIONS (1)
  - Haemorrhage [Unknown]
